FAERS Safety Report 20379762 (Version 15)
Quarter: 2023Q1

REPORT INFORMATION
  Report Type: Report from Study
  Country: CN (occurrence: None)
  Receive Date: 20220126
  Receipt Date: 20230118
  Transmission Date: 20230417
  Serious: Yes (Hospitalization)
  Sender: FDA-Public Use
  Company Number: CN-ROCHE-3004651

PATIENT
  Age: 40 Year
  Sex: Female
  Weight: 95 kg

DRUGS (86)
  1. ATEZOLIZUMAB [Suspect]
     Active Substance: ATEZOLIZUMAB
     Indication: Triple negative breast cancer
     Dosage: ON 28/DEC/2021, SHE RECEIVED MOST RECENT DOSE OF BLINDED ATEZOLIZUMAB PRIOR TO THE AE OR SAE?ON 02/D
     Route: 041
     Dates: start: 20210928
  2. GEMCITABINE [Suspect]
     Active Substance: GEMCITABINE
     Indication: Triple negative breast cancer
     Dosage: ON 05/JAN/2022, SHE RECEIVED MOST RECENT DOSE OF GEMCITABINE 500 MG/M2 PRIOR TO THE AE OR SAE.
     Route: 042
     Dates: start: 20210928
  3. CARBOPLATIN [Suspect]
     Active Substance: CARBOPLATIN
     Indication: Triple negative breast cancer
     Dosage: (AUC) 2 MG/ML/MIN?ON 28/DEC/2021, SHE RECEIVED MOST RECENT DOSE OF CARBOPLATIN 290 MG PRIOR TO THE A
     Route: 042
     Dates: start: 20210928
  4. BICYCLOL [Concomitant]
     Active Substance: BICYCLOL
     Route: 065
     Dates: start: 20211018, end: 20211107
  5. RECOMBINANT HUMAN GRANULOCYTE STIMULATING FACTOR (UNK INGREDIENTS) [Concomitant]
     Dates: start: 20211221, end: 20211221
  6. RECOMBINANT HUMAN GRANULOCYTE STIMULATING FACTOR (UNK INGREDIENTS) [Concomitant]
     Dates: start: 20220328, end: 20220328
  7. RECOMBINANT HUMAN GRANULOCYTE STIMULATING FACTOR (UNK INGREDIENTS) [Concomitant]
     Dates: start: 20220307, end: 20220307
  8. THROMBOPOIETIN [Concomitant]
     Active Substance: THROMBOPOIETIN
     Dates: start: 20211221, end: 20211221
  9. THROMBOPOIETIN [Concomitant]
     Active Substance: THROMBOPOIETIN
     Dates: start: 20220114, end: 20220115
  10. POTASSIUM CHLORIDE EXTENDED RELEASE [Concomitant]
     Active Substance: POTASSIUM CHLORIDE
     Route: 065
     Dates: start: 20220115, end: 20220204
  11. IMIPENEM AND CILASTATIN SODIUM [Concomitant]
     Active Substance: CILASTATIN SODIUM\IMIPENEM
     Route: 065
     Dates: start: 20220115, end: 20220116
  12. DYPHYLLINE [Concomitant]
     Active Substance: DYPHYLLINE
     Route: 065
     Dates: start: 20220116, end: 20220116
  13. AMBROXOL HYDROCHLORIDE [Concomitant]
     Active Substance: AMBROXOL HYDROCHLORIDE
     Route: 065
     Dates: start: 20220115, end: 20220116
  14. VITAMIN C [Concomitant]
     Active Substance: ASCORBIC ACID
     Dates: start: 20220114, end: 20220116
  15. VITAMIN B6 [Concomitant]
     Active Substance: PYRIDOXINE HYDROCHLORIDE
     Dates: start: 20220114, end: 20220116
  16. INSULIN NOS [Concomitant]
     Active Substance: INSULIN NOS
     Dates: start: 20220114, end: 20220116
  17. INSULIN NOS [Concomitant]
     Active Substance: INSULIN NOS
     Dates: start: 20220412, end: 20220412
  18. INSULIN NOS [Concomitant]
     Active Substance: INSULIN NOS
     Dates: start: 20211111
  19. INSULIN NOS [Concomitant]
     Active Substance: INSULIN NOS
     Dates: start: 20211210
  20. INSULIN NOS [Concomitant]
     Active Substance: INSULIN NOS
     Dates: start: 20211228
  21. INSULIN NOS [Concomitant]
     Active Substance: INSULIN NOS
     Dates: start: 20220215
  22. INSULIN NOS [Concomitant]
     Active Substance: INSULIN NOS
     Dates: start: 20220301
  23. INSULIN NOS [Concomitant]
     Active Substance: INSULIN NOS
     Dates: start: 20220322
  24. INSULIN NOS [Concomitant]
     Active Substance: INSULIN NOS
     Dates: start: 20220330
  25. INSULIN NOS [Concomitant]
     Active Substance: INSULIN NOS
     Dates: start: 20220505
  26. INSULIN NOS [Concomitant]
     Active Substance: INSULIN NOS
     Dates: start: 20220526
  27. FLUCONAZOLE [Concomitant]
     Active Substance: FLUCONAZOLE
     Dates: start: 20220114, end: 20220116
  28. OMEPRAZOLE SODIUM [Concomitant]
     Active Substance: OMEPRAZOLE SODIUM
     Dates: start: 20220114, end: 20220116
  29. OMEPRAZOLE SODIUM [Concomitant]
     Active Substance: OMEPRAZOLE SODIUM
     Dates: start: 20211228, end: 20211228
  30. OMEPRAZOLE SODIUM [Concomitant]
     Active Substance: OMEPRAZOLE SODIUM
     Dates: start: 20220105, end: 20220105
  31. OMEPRAZOLE SODIUM [Concomitant]
     Active Substance: OMEPRAZOLE SODIUM
     Dates: start: 20220207, end: 20220207
  32. OMEPRAZOLE SODIUM [Concomitant]
     Active Substance: OMEPRAZOLE SODIUM
     Dates: start: 20220215, end: 20220215
  33. OMEPRAZOLE SODIUM [Concomitant]
     Active Substance: OMEPRAZOLE SODIUM
     Dates: start: 20220301, end: 20220301
  34. OMEPRAZOLE SODIUM [Concomitant]
     Active Substance: OMEPRAZOLE SODIUM
     Dates: start: 20220322, end: 20220322
  35. OMEPRAZOLE SODIUM [Concomitant]
     Active Substance: OMEPRAZOLE SODIUM
     Dates: start: 20220330, end: 20220330
  36. OMEPRAZOLE SODIUM [Concomitant]
     Active Substance: OMEPRAZOLE SODIUM
     Dates: start: 20220412, end: 20220412
  37. OMEPRAZOLE SODIUM [Concomitant]
     Active Substance: OMEPRAZOLE SODIUM
     Dates: start: 20220505, end: 20220505
  38. OMEPRAZOLE SODIUM [Concomitant]
     Active Substance: OMEPRAZOLE SODIUM
     Dates: start: 20220526, end: 20220526
  39. OMEPRAZOLE SODIUM [Concomitant]
     Active Substance: OMEPRAZOLE SODIUM
     Dates: start: 20220602, end: 20220602
  40. OMEPRAZOLE SODIUM [Concomitant]
     Active Substance: OMEPRAZOLE SODIUM
     Dates: start: 20220624, end: 20220624
  41. OMEPRAZOLE SODIUM [Concomitant]
     Active Substance: OMEPRAZOLE SODIUM
     Dates: start: 20211210
  42. OMEPRAZOLE SODIUM [Concomitant]
     Active Substance: OMEPRAZOLE SODIUM
     Dates: start: 20220715
  43. POTASSIUM CHLORIDE [Concomitant]
     Active Substance: POTASSIUM CHLORIDE
     Dates: start: 20220114, end: 20220114
  44. TROPISETRON [Concomitant]
     Active Substance: TROPISETRON
     Dates: start: 20210928, end: 20210928
  45. TROPISETRON [Concomitant]
     Active Substance: TROPISETRON
     Dates: start: 20211008, end: 20211008
  46. TROPISETRON [Concomitant]
     Active Substance: TROPISETRON
     Dates: start: 20211021, end: 20211021
  47. TROPISETRON [Concomitant]
     Active Substance: TROPISETRON
     Dates: start: 20211028, end: 20211028
  48. TROPISETRON [Concomitant]
     Active Substance: TROPISETRON
     Dates: start: 20211111, end: 20211111
  49. TROPISETRON [Concomitant]
     Active Substance: TROPISETRON
     Dates: start: 20211202, end: 20211202
  50. TROPISETRON [Concomitant]
     Active Substance: TROPISETRON
     Dates: start: 20211210, end: 20211210
  51. TROPISETRON [Concomitant]
     Active Substance: TROPISETRON
     Dates: start: 20211228, end: 20211228
  52. TROPISETRON [Concomitant]
     Active Substance: TROPISETRON
     Dates: start: 20220207, end: 20220207
  53. TROPISETRON [Concomitant]
     Active Substance: TROPISETRON
     Dates: start: 20220215, end: 20220215
  54. TROPISETRON [Concomitant]
     Active Substance: TROPISETRON
     Dates: start: 20220301, end: 20220301
  55. TROPISETRON [Concomitant]
     Active Substance: TROPISETRON
     Dates: start: 20220322, end: 20220322
  56. TROPISETRON [Concomitant]
     Active Substance: TROPISETRON
     Dates: start: 20220330, end: 20220330
  57. TROPISETRON [Concomitant]
     Active Substance: TROPISETRON
     Dates: start: 20220412, end: 20220412
  58. TROPISETRON [Concomitant]
     Active Substance: TROPISETRON
     Dates: start: 20220505, end: 20220505
  59. TROPISETRON [Concomitant]
     Active Substance: TROPISETRON
     Dates: start: 20220526, end: 20220526
  60. TROPISETRON [Concomitant]
     Active Substance: TROPISETRON
     Dates: start: 20220602, end: 20220602
  61. TROPISETRON [Concomitant]
     Active Substance: TROPISETRON
     Dates: start: 20220624, end: 20220624
  62. TROPISETRON [Concomitant]
     Active Substance: TROPISETRON
     Dates: start: 20220105
  63. TROPISETRON [Concomitant]
     Active Substance: TROPISETRON
     Dates: start: 20220715
  64. TROPISETRON [Concomitant]
     Active Substance: TROPISETRON
     Dates: start: 20220809
  65. TROPISETRON [Concomitant]
     Active Substance: TROPISETRON
     Dates: start: 20220830
  66. METOPRAMIDE [Concomitant]
     Dates: start: 20210929, end: 20210929
  67. APREPITANT [Concomitant]
     Active Substance: APREPITANT
     Dates: start: 20211111, end: 20211113
  68. APREPITANT [Concomitant]
     Active Substance: APREPITANT
     Dates: start: 20211202, end: 20211204
  69. APREPITANT [Concomitant]
     Active Substance: APREPITANT
     Dates: start: 20211210, end: 20211212
  70. APREPITANT [Concomitant]
     Active Substance: APREPITANT
     Dates: start: 20211210, end: 20211210
  71. APREPITANT [Concomitant]
     Active Substance: APREPITANT
     Dates: start: 20211227, end: 20211229
  72. APREPITANT [Concomitant]
     Active Substance: APREPITANT
     Dates: start: 20220207, end: 20220209
  73. APREPITANT [Concomitant]
     Active Substance: APREPITANT
     Dates: start: 20220215, end: 20220217
  74. APREPITANT [Concomitant]
     Active Substance: APREPITANT
     Dates: start: 20220301, end: 20220303
  75. APREPITANT [Concomitant]
     Active Substance: APREPITANT
     Dates: start: 20220322, end: 20220324
  76. APREPITANT [Concomitant]
     Active Substance: APREPITANT
     Dates: start: 20220330, end: 20220401
  77. APREPITANT [Concomitant]
     Active Substance: APREPITANT
     Dates: start: 20220412, end: 20220414
  78. APREPITANT [Concomitant]
     Active Substance: APREPITANT
     Dates: start: 20220526, end: 20220528
  79. CIMETIDINE [Concomitant]
     Active Substance: CIMETIDINE
     Dates: start: 20211111, end: 20211111
  80. CIMETIDINE [Concomitant]
     Active Substance: CIMETIDINE
     Dates: start: 20211118, end: 20211118
  81. RAMOSETRON HYDROCHLORIDE [Concomitant]
     Active Substance: RAMOSETRON HYDROCHLORIDE
     Dates: start: 20211118, end: 20211118
  82. NIFEDIPINE [Concomitant]
     Active Substance: NIFEDIPINE
     Dates: start: 20220830
  83. MOXIFLOXACIN HYDROCHLORIDE [Concomitant]
     Active Substance: MOXIFLOXACIN HYDROCHLORIDE
     Dates: start: 20220810, end: 20220814
  84. MOXIFLOXACIN HYDROCHLORIDE [Concomitant]
     Active Substance: MOXIFLOXACIN HYDROCHLORIDE
     Dates: start: 20220831, end: 20220904
  85. MOXIFLOXACIN HYDROCHLORIDE [Concomitant]
     Active Substance: MOXIFLOXACIN HYDROCHLORIDE
     Dates: start: 20221013, end: 20221017
  86. MOXIFLOXACIN HYDROCHLORIDE [Concomitant]
     Active Substance: MOXIFLOXACIN HYDROCHLORIDE
     Dates: start: 20221124, end: 20221128

REACTIONS (1)
  - Myelosuppression [Recovered/Resolved]

NARRATIVE: CASE EVENT DATE: 20220113
